FAERS Safety Report 21397369 (Version 2)
Quarter: 2023Q1

REPORT INFORMATION
  Report Type: Report from Study
  Country: EG (occurrence: EG)
  Receive Date: 20220930
  Receipt Date: 20230130
  Transmission Date: 20230418
  Serious: Yes (Hospitalization, Other)
  Sender: FDA-Public Use
  Company Number: EG-NOVARTISPH-NVSC2022EG221288

PATIENT
  Age: 32 Year
  Sex: Female

DRUGS (6)
  1. GILENYA [Suspect]
     Active Substance: FINGOLIMOD HYDROCHLORIDE
     Indication: Multiple sclerosis
     Dosage: UNK
     Route: 048
     Dates: start: 20220921
  2. PARAMOL [Concomitant]
     Indication: Analgesic therapy
     Dosage: 1 DOSAGE FORM, QD
     Route: 065
  3. CAL-MAG [Concomitant]
     Indication: Supplementation therapy
     Dosage: 1 DOSAGE FORM, QD
     Route: 065
  4. GAPTIN [Concomitant]
     Indication: Muscle relaxant therapy
     Dosage: 1 DOSAGE FORM, QD
     Route: 065
  5. .ALPHA.-LIPOIC ACID [Concomitant]
     Active Substance: .ALPHA.-LIPOIC ACID
     Indication: Neuralgia
     Dosage: 1 DOSAGE FORM, QD
     Route: 065
  6. CONTROLOC [Concomitant]
     Active Substance: PANTOPRAZOLE SODIUM
     Indication: Abdominal pain upper
     Dosage: 1 DOSAGE FORM, QD
     Route: 065

REACTIONS (20)
  - Multiple sclerosis relapse [Unknown]
  - Hypoaesthesia [Unknown]
  - Gait disturbance [Unknown]
  - Burning sensation [Unknown]
  - Limb discomfort [Recovering/Resolving]
  - Balance disorder [Recovering/Resolving]
  - Circulatory collapse [Unknown]
  - Insomnia [Unknown]
  - Pain [Unknown]
  - Heart rate increased [Unknown]
  - Migraine [Not Recovered/Not Resolved]
  - Ocular discomfort [Not Recovered/Not Resolved]
  - Dyspnoea [Unknown]
  - Fatigue [Unknown]
  - Intervertebral disc disorder [Recovering/Resolving]
  - Blood glucose increased [Unknown]
  - Hypotension [Unknown]
  - Product dispensing error [Unknown]
  - Inappropriate schedule of product administration [Unknown]
  - Drug ineffective [Unknown]

NARRATIVE: CASE EVENT DATE: 20221113
